FAERS Safety Report 5393056-3 (Version None)
Quarter: 2007Q3

REPORT INFORMATION
  Report Type: 
  Country: None (occurrence: None)
  Receive Date: 20070719
  Receipt Date: 20070709
  Transmission Date: 20080115
  Serious: Yes (Hospitalization)
  Sender: FDA-Public Use
  Company Number: CIP07001306

PATIENT
  Age: 76 Year
  Sex: Female

DRUGS (1)
  1. ACTONEL [Suspect]
     Indication: OSTEOPOROSIS
     Dosage: 35 MG ONCE WEEKLY, ORAL
     Route: 048
     Dates: start: 20070101, end: 20070101

REACTIONS (3)
  - BLOOD CALCIUM INCREASED [None]
  - DYSPHAGIA [None]
  - PARAPHARYNGEAL ABSCESS [None]
